FAERS Safety Report 9199474 (Version 3)
Quarter: 2013Q2

REPORT INFORMATION
  Report Type: Spontaneous
  Country: US (occurrence: US)
  Receive Date: 20130329
  Receipt Date: 20130513
  Transmission Date: 20140414
  Serious: No
  Sender: FDA-Public Use
  Company Number: US-PFIZER INC-2013100914

PATIENT
  Age: 57 Year
  Sex: Female

DRUGS (3)
  1. CHANTIX [Suspect]
     Indication: SMOKING CESSATION THERAPY
     Dosage: 1 MG, 2X/DAY
     Route: 048
     Dates: start: 20130304
  2. CLONAZEPAM [Concomitant]
     Dosage: 0.5 MG, AS NEEDED
  3. TEMAZEPAM [Concomitant]
     Indication: SLEEP DISORDER
     Dosage: 30 MG, 1X/DAY

REACTIONS (2)
  - Rash [Recovered/Resolved]
  - Pruritus [Recovered/Resolved]
